FAERS Safety Report 8640897 (Version 5)
Quarter: 2013Q2

REPORT INFORMATION
  Report Type: Spontaneous
  Country: SE (occurrence: SE)
  Receive Date: 20120628
  Receipt Date: 20130416
  Transmission Date: 20140414
  Serious: Yes (Hospitalization, Other)
  Sender: FDA-Public Use
  Company Number: SE-BRISTOL-MYERS SQUIBB COMPANY-16698748

PATIENT
  Age: 69 Year
  Sex: Female

DRUGS (15)
  1. ORENCIA FOR INJ [Suspect]
     Indication: OSTEOARTHRITIS
     Dosage: LAST INF ON 31MAY12,?INTERUPTED ON 3JUL12
     Route: 042
     Dates: start: 20110202, end: 20130411
  2. ORENCIA FOR INJ [Suspect]
     Indication: RHEUMATOID ARTHRITIS
     Dosage: LAST INF ON 31MAY12,?INTERUPTED ON 3JUL12
     Route: 042
     Dates: start: 20110202, end: 20130411
  3. PLAVIX [Concomitant]
  4. ARTROX [Concomitant]
  5. PARAFLEX [Concomitant]
  6. TRYPTIZOL [Concomitant]
  7. TRADOLAN [Concomitant]
  8. SELOKEN ZOC [Concomitant]
  9. LORATADINE [Concomitant]
  10. CALCIUM CARBONATE [Concomitant]
  11. COLECALCIFEROL [Concomitant]
  12. VITAMIN D3 [Concomitant]
  13. ALVEDON FORTE [Concomitant]
  14. SIMVASTATIN [Concomitant]
  15. PREDNISOLONE [Concomitant]

REACTIONS (7)
  - Colitis [Recovered/Resolved]
  - Post procedural infection [Unknown]
  - Foot operation [Not Recovered/Not Resolved]
  - Dyspnoea [Not Recovered/Not Resolved]
  - Palpitations [Not Recovered/Not Resolved]
  - Headache [Not Recovered/Not Resolved]
  - Drug ineffective [Unknown]
